FAERS Safety Report 5932106-X (Version None)
Quarter: 2008Q4

REPORT INFORMATION
  Report Type: 
  Country: None (occurrence: None)
  Receive Date: 20081027
  Receipt Date: 20081018
  Transmission Date: 20090506
  Serious: Yes (Other)
  Sender: FDA-Public Use
  Company Number: BR-JNJCH-2008052524

PATIENT
  Sex: Male

DRUGS (1)
  1. COOL MINT LISTERINE [Suspect]
     Indication: DRUG USE FOR UNKNOWN INDICATION
     Dosage: TEXT:UNSPECIFIED, THREE TIMES DAILY
     Route: 048

REACTIONS (4)
  - ERYTHEMA [None]
  - INCORRECT DOSE ADMINISTERED [None]
  - OCULAR HYPERAEMIA [None]
  - RASH PAPULAR [None]
